FAERS Safety Report 10491769 (Version 1)
Quarter: 2014Q4

REPORT INFORMATION
  Report Type: Spontaneous
  Country: US (occurrence: US)
  Receive Date: 20141002
  Receipt Date: 20141002
  Transmission Date: 20150528
  Serious: No
  Sender: FDA-Public Use
  Company Number: US-GLAXOSMITHKLINE-A1059276A

PATIENT
  Age: 35 Year
  Sex: Female

DRUGS (4)
  1. QVAR [Concomitant]
     Active Substance: BECLOMETHASONE DIPROPIONATE
  2. PROAIR HFA [Concomitant]
     Active Substance: ALBUTEROL SULFATE
  3. SINGULAIR [Concomitant]
     Active Substance: MONTELUKAST SODIUM
  4. ADVAIR HFA [Suspect]
     Active Substance: FLUTICASONE PROPIONATE\SALMETEROL XINAFOATE
     Indication: ASTHMA
     Dosage: 1PUFF TWICE PER DAY
     Route: 055
     Dates: start: 2010

REACTIONS (11)
  - Bronchitis [Unknown]
  - Pulmonary function test decreased [Unknown]
  - Dysgeusia [Unknown]
  - Cough [Unknown]
  - Fatigue [Unknown]
  - Incorrect dose administered [Unknown]
  - Product quality issue [Unknown]
  - Malaise [Unknown]
  - Asthma [Unknown]
  - Asthma [Unknown]
  - Bronchitis [Unknown]

NARRATIVE: CASE EVENT DATE: 201311
